FAERS Safety Report 15011769 (Version 1)
Quarter: 2018Q2

REPORT INFORMATION
  Report Type: Report from Study
  Country: IQ (occurrence: IQ)
  Receive Date: 20180614
  Receipt Date: 20180614
  Transmission Date: 20180711
  Serious: Yes (Other)
  Sender: FDA-Public Use
  Company Number: IQ-VIIV HEALTHCARE LIMITED-IQ2018106195

PATIENT

DRUGS (1)
  1. LAMIVUDINE. [Suspect]
     Active Substance: LAMIVUDINE
     Indication: CHRONIC HEPATITIS B
     Dosage: UNK
     Route: 065

REACTIONS (4)
  - Hepatic failure [Recovered/Resolved]
  - Drug resistance [Unknown]
  - Viral mutation identified [Unknown]
  - Virologic failure [Unknown]
